FAERS Safety Report 17206922 (Version 1)
Quarter: 2019Q4

REPORT INFORMATION
  Report Type: Spontaneous
  Country: SE (occurrence: SE)
  Receive Date: 20191227
  Receipt Date: 20191227
  Transmission Date: 20200122
  Serious: Yes (Hospitalization)
  Sender: FDA-Public Use
  Company Number: SE-MYLANLABS-2019M1129590

PATIENT
  Age: 17 Year
  Sex: Female

DRUGS (1)
  1. LERGIGAN (PROMETHAZINE) [Suspect]
     Active Substance: PROMETHAZINE HYDROCHLORIDE
     Indication: PRODUCT USED FOR UNKNOWN INDICATION
     Dosage: ^50 MG P? MORGONEN 8 TABLETTER VID 16.30^
     Route: 048
     Dates: start: 20190103, end: 20190103

REACTIONS (6)
  - Overdose [Unknown]
  - Palpitations [Unknown]
  - Muscle twitching [Unknown]
  - Dizziness [Unknown]
  - Fatigue [Unknown]
  - Formication [Unknown]

NARRATIVE: CASE EVENT DATE: 20190103
